FAERS Safety Report 6632699-3 (Version None)
Quarter: 2010Q1

REPORT INFORMATION
  Report Type: 
  Country: None (occurrence: None)
  Receive Date: 20100310
  Receipt Date: 20100223
  Transmission Date: 20100710
  Serious: Yes (Hospitalization)
  Sender: FDA-Public Use
  Company Number: 008413

PATIENT
  Sex: Female
  Weight: 73 kg

DRUGS (5)
  1. CIMZIA [Suspect]
     Indication: CROHN'S DISEASE
     Dosage: (SUBCUTANEOUS)
     Route: 058
     Dates: start: 20091109
  2. PREDNISONE TAB [Concomitant]
  3. METHOTREXATE [Concomitant]
  4. LOPERAMIDE [Concomitant]
  5. IBUPROFEN [Concomitant]

REACTIONS (2)
  - CELLULITIS [None]
  - SMALL INTESTINAL OBSTRUCTION [None]
